FAERS Safety Report 5120187-5 (Version None)
Quarter: 2006Q3

REPORT INFORMATION
  Report Type: 
  Country: None (occurrence: None)
  Receive Date: 20060928
  Receipt Date: 20060918
  Transmission Date: 20061208
  Serious: Yes (Other)
  Sender: FDA-Public Use
  Company Number: 2006068540

PATIENT
  Age: 55 Year
  Sex: Female
  Weight: 67 kg

DRUGS (2)
  1. NICORETTE [Suspect]
     Dosage: 15 + 5 MG PER 16 HOURS ONCE DAILY, TRANSDERMAL
     Route: 062
     Dates: start: 20060509, end: 20060518
  2. CAPOZIDE (CAPTOPRIL) [Concomitant]

REACTIONS (2)
  - ANGIONEUROTIC OEDEMA [None]
  - HYPERSENSITIVITY [None]
